FAERS Safety Report 21629139 (Version 1)
Quarter: 2022Q4

REPORT INFORMATION
  Report Type: Spontaneous
  Country: US (occurrence: None)
  Receive Date: 20221121
  Receipt Date: 20221121
  Transmission Date: 20230112
  Serious: Yes (Death)
  Sender: FDA-Public Use
  Company Number: None

PATIENT
  Age: 78 Year
  Sex: Male
  Weight: 90.26 kg

DRUGS (10)
  1. TEMOZOLOMIDE [Suspect]
     Active Substance: TEMOZOLOMIDE
     Indication: Brain neoplasm malignant
     Dosage: FREQUENCY : DAILY;?
     Route: 048
     Dates: start: 202009, end: 20221121
  2. AMLODIPINE [Concomitant]
  3. DOXYCYCLINE [Concomitant]
  4. HYDROCHLOROTHIAZIDE [Concomitant]
  5. LEVETIRACETAM [Concomitant]
  6. MYRETRIQ [Concomitant]
  7. ONDANSETRON [Concomitant]
  8. ROSUVASTATIN [Concomitant]
  9. TAMSULOSIN [Concomitant]
  10. TEMODAR [Concomitant]

REACTIONS (1)
  - Disease progression [None]
